FAERS Safety Report 16324530 (Version 2)
Quarter: 2019Q2

REPORT INFORMATION
  Report Type: Spontaneous
  Country: US (occurrence: US)
  Receive Date: 20190517
  Receipt Date: 20190525
  Transmission Date: 20190711
  Serious: Yes (Other)
  Sender: FDA-Public Use
  Company Number: US-UCBSA-2018024113

PATIENT
  Age: 63 Year
  Sex: Male

DRUGS (1)
  1. VIMPAT [Suspect]
     Active Substance: LACOSAMIDE
     Indication: EPILEPSY
     Dosage: 300 MILLIGRAM, 2X/DAY (BID)
     Route: 048
     Dates: start: 2017

REACTIONS (4)
  - Amnesia [Unknown]
  - Intentional overdose [Unknown]
  - Brain operation [Unknown]
  - Product dose omission [Unknown]

NARRATIVE: CASE EVENT DATE: 2017
